FAERS Safety Report 6243725-8 (Version None)
Quarter: 2009Q2

REPORT INFORMATION
  Report Type: 
  Country: None (occurrence: None)
  Receive Date: 20090624
  Receipt Date: 20090615
  Transmission Date: 20091009
  Serious: Yes (Other)
  Sender: FDA-Public Use
  Company Number: ES-SANOFI-SYNTHELABO-F01200900585

PATIENT
  Sex: Male

DRUGS (4)
  1. ALBUTEROL [Concomitant]
     Indication: BRONCHITIS CHRONIC
     Dosage: UNK
     Dates: start: 20000101
  2. ATORVASTATIN CALCIUM [Concomitant]
     Indication: DYSLIPIDAEMIA
     Route: 048
     Dates: start: 20000101
  3. ELIGARD [Suspect]
     Indication: PROSTATE CANCER
     Dosage: 22.5 MG
     Route: 058
     Dates: start: 20090130, end: 20090130
  4. BICALUTAMIDE [Suspect]
     Indication: PROSTATE CANCER
     Dosage: 50 MG
     Route: 048
     Dates: start: 20090130, end: 20090501

REACTIONS (1)
  - THROMBOCYTOPENIA [None]
